FAERS Safety Report 12382160 (Version 2)
Quarter: 2016Q2

REPORT INFORMATION
  Report Type: Spontaneous
  Country: US (occurrence: US)
  Receive Date: 20160518
  Receipt Date: 20160617
  Transmission Date: 20160815
  Serious: Yes (Other)
  Sender: FDA-Public Use
  Company Number: US-GLAXOSMITHKLINE-US2016061560

PATIENT
  Sex: Female
  Weight: 85.71 kg

DRUGS (12)
  1. LEUCOVORIN. [Concomitant]
     Active Substance: LEUCOVORIN
  2. PREDNISONE. [Concomitant]
     Active Substance: PREDNISONE
  3. MYSOLINE [Concomitant]
     Active Substance: PRIMIDONE
  4. RESTASIS [Concomitant]
     Active Substance: CYCLOSPORINE
  5. TRAMADOL. [Concomitant]
     Active Substance: TRAMADOL
  6. SOLU-MEDROL [Concomitant]
     Active Substance: METHYLPREDNISOLONE SODIUM SUCCINATE
  7. BENADRYL [Concomitant]
     Active Substance: DIPHENHYDRAMINE HYDROCHLORIDE
  8. METHOTREXATE [Concomitant]
     Active Substance: METHOTREXATE
  9. ZOLOFT [Concomitant]
     Active Substance: SERTRALINE HYDROCHLORIDE
  10. BENLYSTA [Suspect]
     Active Substance: BELIMUMAB
     Indication: SYSTEMIC LUPUS ERYTHEMATOSUS
     Dosage: 800 MG, UNK
     Route: 042
     Dates: start: 20151021
  11. PLAQUENIL [Concomitant]
     Active Substance: HYDROXYCHLOROQUINE SULFATE
  12. ZOFRAN [Concomitant]
     Active Substance: ONDANSETRON HYDROCHLORIDE

REACTIONS (7)
  - Drug ineffective [Unknown]
  - Malaise [Unknown]
  - Vein collapse [Recovered/Resolved]
  - Pyrexia [Unknown]
  - Gait disturbance [Unknown]
  - Therapeutic response decreased [Not Recovered/Not Resolved]
  - Systemic lupus erythematosus [Unknown]
